FAERS Safety Report 6948279-6 (Version None)
Quarter: 2010Q3

REPORT INFORMATION
  Report Type: 
  Country: None (occurrence: None)
  Receive Date: 20100828
  Receipt Date: 20091026
  Transmission Date: 20110219
  Serious: No
  Sender: FDA-Public Use
  Company Number: US-ABBOTT-09P-163-0605616-00

PATIENT
  Weight: 67.192 kg

DRUGS (4)
  1. NIASPAN [Suspect]
     Indication: HIGH DENSITY LIPOPROTEIN DECREASED
     Dosage: SEP
     Dates: start: 20090901
  2. NIASPAN [Suspect]
     Dates: end: 20091025
  3. ASPIRIN [Concomitant]
     Indication: PRODUCT USED FOR UNKNOWN INDICATION
  4. MULTIVITAMIN , C AND D [Concomitant]
     Indication: PRODUCT USED FOR UNKNOWN INDICATION

REACTIONS (9)
  - ASTHENIA [None]
  - CHOKING SENSATION [None]
  - HEART RATE INCREASED [None]
  - HOT FLUSH [None]
  - HYPOAESTHESIA [None]
  - OCULAR HYPERAEMIA [None]
  - PALLOR [None]
  - PARAESTHESIA [None]
  - TREMOR [None]
